FAERS Safety Report 24399858 (Version 1)
Quarter: 2024Q4

REPORT INFORMATION
  Report Type: Spontaneous
  Country: FR (occurrence: FR)
  Receive Date: 20241005
  Receipt Date: 20241005
  Transmission Date: 20250114
  Serious: Yes (Hospitalization, Other)
  Sender: BAXTER
  Company Number: None

PATIENT
  Age: 78 Year
  Sex: Female

DRUGS (5)
  1. METRONIDAZOLE [Suspect]
     Active Substance: METRONIDAZOLE
     Indication: Colitis
     Dosage: DURATION: 5 DAYS, UNSPECIFIED DOSE AND FREQUENCY
     Route: 042
     Dates: start: 20240806, end: 20240811
  2. IOBITRIDOL [Suspect]
     Active Substance: IOBITRIDOL
     Indication: Computerised tomogram
     Dosage: DURATION: 1 DAY, 1 DOSAGE FORM 1 TOTAL
     Route: 042
     Dates: start: 20240806, end: 20240806
  3. CEFTRIAXONE [Suspect]
     Active Substance: CEFTRIAXONE
     Indication: Colitis
     Dosage: DURATION: 6 DAYS, UNSPECIFIED DOSE AND FREQUENCY
     Route: 042
     Dates: start: 20240806, end: 20240812
  4. RACECADOTRIL [Suspect]
     Active Substance: RACECADOTRIL
     Indication: Diarrhoea
     Dosage: DURATION: 6 DAYS, UNSPECIFIED DOSE AND FREQUENCY
     Route: 048
     Dates: start: 20240806, end: 20240812
  5. PHLOROGLUCINOL\1,3,5-TRIMETHOXYBENZENE [Suspect]
     Active Substance: PHLOROGLUCINOL\1,3,5-TRIMETHOXYBENZENE
     Indication: Abdominal pain
     Dosage: DURATION: 4 DAYS, UNSPECIFIED DOSE AND FREQUENCY
     Route: 048
     Dates: start: 20240808, end: 20240812

REACTIONS (1)
  - Acute generalised exanthematous pustulosis [Recovering/Resolving]

NARRATIVE: CASE EVENT DATE: 20240809
